FAERS Safety Report 6279203-X (Version None)
Quarter: 2009Q3

REPORT INFORMATION
  Report Type: 
  Country: None (occurrence: None)
  Receive Date: 20090723
  Receipt Date: 20080723
  Transmission Date: 20100115
  Serious: No
  Sender: FDA-Public Use
  Company Number: US-AMGEN-KDL297106

PATIENT
  Age: 56 Year
  Sex: Male

DRUGS (8)
  1. PROCRIT [Suspect]
     Indication: RENAL FAILURE CHRONIC
  2. ASPIRIN [Concomitant]
  3. LISINOPRIL [Concomitant]
  4. LIPITOR [Concomitant]
  5. CITRACAL [Concomitant]
  6. MULTI-VITAMINS [Concomitant]
  7. SODIUM BICARBONATE [Concomitant]
  8. POLYSTYRENE SULFONATE [Concomitant]

REACTIONS (1)
  - HAEMOGLOBIN DECREASED [None]
